FAERS Safety Report 8978449 (Version 1)
Quarter: 2012Q4

REPORT INFORMATION
  Report Type: 
  Country: US (occurrence: US)
  Receive Date: 20121220
  Receipt Date: 20121220
  Transmission Date: 20130627
  Serious: No
  Sender: FDA-Public Use
  Company Number: US-009507513-1212USA007153

PATIENT
  Age: 24 Year
  Sex: Female
  Weight: 58.96 kg

DRUGS (2)
  1. IMPLANON [Suspect]
     Indication: CONTRACEPTION
     Dosage: UNK
     Dates: start: 20120109
  2. ZANAFLEX [Concomitant]

REACTIONS (4)
  - Unintended pregnancy [Unknown]
  - Medical device complication [Unknown]
  - Amenorrhoea [Unknown]
  - Device dislocation [Unknown]
